FAERS Safety Report 9216878 (Version 1)
Quarter: 2013Q2

REPORT INFORMATION
  Report Type: Spontaneous
  Country: US (occurrence: US)
  Receive Date: 20130408
  Receipt Date: 20130408
  Transmission Date: 20140414
  Serious: Yes (Other)
  Sender: FDA-Public Use
  Company Number: US-PFIZER INC-2013108895

PATIENT
  Age: 8 Decade
  Sex: Female
  Weight: 62.59 kg

DRUGS (2)
  1. NEURONTIN [Suspect]
     Indication: HERPES ZOSTER
     Dosage: 400MG DAILY
     Route: 048
     Dates: start: 2008
  2. ATORVASTATIN CALCIUM [Concomitant]
     Indication: BLOOD CHOLESTEROL INCREASED
     Dosage: 20MG DAILY

REACTIONS (6)
  - Kidney infection [Unknown]
  - Speech disorder [Not Recovered/Not Resolved]
  - Dyskinesia [Not Recovered/Not Resolved]
  - Amnesia [Not Recovered/Not Resolved]
  - Fatigue [Not Recovered/Not Resolved]
  - Intentional drug misuse [Unknown]
